FAERS Safety Report 11165771 (Version 1)
Quarter: 2015Q2

REPORT INFORMATION
  Report Type: Spontaneous
  Country: US (occurrence: None)
  Receive Date: 20150603
  Receipt Date: 20150603
  Transmission Date: 20150821
  Serious: Yes (Other)
  Sender: FDA-Public Use
  Company Number: None

PATIENT
  Age: 68 Year
  Sex: Female
  Weight: 69.85 kg

DRUGS (8)
  1. TYLENOL [Concomitant]
     Active Substance: ACETAMINOPHEN
  2. ZYRTEC D ALLERGY AND CONGESTION [Concomitant]
     Active Substance: CETIRIZINE HYDROCHLORIDE\PSEUDOEPHEDRINE HYDROCHLORIDE
  3. AZELASTINE NASAL SPRAY [Concomitant]
  4. MAALOX ANTACID [Concomitant]
     Active Substance: ALUMINUM HYDROXIDE\DIMETHICONE\MAGNESIUM HYDROXIDE
  5. VIEKIRA PAK [Suspect]
     Active Substance: DASABUVIR\OMBITASVIR\PARITAPREVIR\RITONAVIR
     Indication: CHRONIC HEPATITIS C
     Dosage: 4 PILLS ?3 IN AM ?1 IN PM ?BY MOUTH
     Route: 048
     Dates: start: 20150416, end: 20150519
  6. FLONASE [Concomitant]
     Active Substance: FLUTICASONE PROPIONATE
  7. METOPROLOL [Concomitant]
     Active Substance: METOPROLOL
  8. ALIGN PROBIOTIC [Concomitant]

REACTIONS (15)
  - Swelling [None]
  - Throat irritation [None]
  - Hearing impaired [None]
  - Oedema peripheral [None]
  - Swelling face [None]
  - Stomatitis [None]
  - Oral mucosal exfoliation [None]
  - Dehydration [None]
  - Pharyngeal disorder [None]
  - Local swelling [None]
  - Tongue discolouration [None]
  - Skin discolouration [None]
  - Oedema [None]
  - Erythema [None]
  - Oral discomfort [None]

NARRATIVE: CASE EVENT DATE: 20150513
